FAERS Safety Report 11768698 (Version 2)
Quarter: 2016Q1

REPORT INFORMATION
  Report Type: Spontaneous
  Country: GB (occurrence: GB)
  Receive Date: 20151123
  Receipt Date: 20160107
  Transmission Date: 20160525
  Serious: Yes (Hospitalization, Other)
  Sender: FDA-Public Use
  Company Number: GB-ALEXION PHARMACEUTICALS INC-A201503714

PATIENT
  Age: 22 Year
  Sex: Female
  Weight: 60 kg

DRUGS (4)
  1. PEN V                              /00001801/ [Concomitant]
     Indication: PROPHYLAXIS
     Dosage: 500 MG, UNK
     Route: 048
     Dates: start: 20150406
  2. RAMIPRIL. [Concomitant]
     Active Substance: RAMIPRIL
     Indication: HYPERTENSION
  3. RAMIPRIL. [Concomitant]
     Active Substance: RAMIPRIL
     Indication: HAEMOLYTIC URAEMIC SYNDROME
     Dosage: 2.5 MG, UNK
     Route: 048
     Dates: start: 201504
  4. SOLIRIS [Suspect]
     Active Substance: ECULIZUMAB
     Indication: HAEMOLYTIC URAEMIC SYNDROME
     Dosage: 1200 MG, Q2W
     Route: 042
     Dates: start: 20150323

REACTIONS (2)
  - Gonorrhoea [Recovered/Resolved]
  - Meningococcal infection [Recovered/Resolved]

NARRATIVE: CASE EVENT DATE: 20150916
